FAERS Safety Report 19010731 (Version 1)
Quarter: 2021Q1

REPORT INFORMATION
  Report Type: Spontaneous
  Country: CN (occurrence: CN)
  Receive Date: 20210315
  Receipt Date: 20210315
  Transmission Date: 20210420
  Serious: Yes (Other)
  Sender: FDA-Public Use
  Company Number: CN-BAXTER-2021BAX004800

PATIENT
  Age: 55 Year
  Sex: Female
  Weight: 57.5 kg

DRUGS (5)
  1. 0.9% SODIUM CHLORIDE INJECTION [Suspect]
     Active Substance: SODIUM CHLORIDE
     Indication: MEDICATION DILUTION
     Dosage: 1ST CHEMOTHERAPY: ENDOXAN 880 MG + NS 40 ML
     Route: 042
     Dates: start: 20210111, end: 20210111
  2. PHARMORUBICIN [Suspect]
     Active Substance: EPIRUBICIN
     Indication: BREAST CANCER FEMALE
     Dosage: 1ST CHEMOTHERAPY: PHARMORUBICIN 130 MG + NS 100 ML
     Route: 041
     Dates: start: 20210111, end: 20210111
  3. 0.9% SODIUM CHLORIDE INJECTION [Suspect]
     Active Substance: SODIUM CHLORIDE
     Dosage: 1ST CHEMOTHERAPY: PHARMORUBICIN 130 MG + NS 100 ML
     Route: 041
     Dates: start: 20210111, end: 20210111
  4. ENDOXAN [Suspect]
     Active Substance: CYCLOPHOSPHAMIDE
     Indication: BREAST CANCER FEMALE
     Dosage: 1ST CHEMOTHERAPY; ENDOXAN 880 MG + NS 40 ML
     Route: 042
     Dates: start: 20210111, end: 20210111
  5. JINYOULI XINRUIBAI [Concomitant]
     Indication: PRODUCT USED FOR UNKNOWN INDICATION
     Route: 058
     Dates: start: 20210112, end: 20210112

REACTIONS (2)
  - Leukopenia [Recovering/Resolving]
  - Agranulocytosis [Recovering/Resolving]

NARRATIVE: CASE EVENT DATE: 20210118
